FAERS Safety Report 23789541 (Version 1)
Quarter: 2024Q2

REPORT INFORMATION
  Report Type: Spontaneous
  Country: US (occurrence: None)
  Receive Date: 20240426
  Receipt Date: 20240426
  Transmission Date: 20240716
  Serious: No
  Sender: FDA-Public Use
  Company Number: None

PATIENT
  Age: 36 Year
  Sex: Female
  Weight: 128 kg

DRUGS (1)
  1. APIXABAN [Suspect]
     Active Substance: APIXABAN
     Indication: Deep vein thrombosis
     Dates: start: 20210216, end: 20230526

REACTIONS (4)
  - Deep vein thrombosis [None]
  - Therapy interrupted [None]
  - Treatment failure [None]
  - Treatment noncompliance [None]

NARRATIVE: CASE EVENT DATE: 20230526
